FAERS Safety Report 8954191 (Version 1)
Quarter: 2012Q4

REPORT INFORMATION
  Report Type: 
  Country: US (occurrence: US)
  Receive Date: 20121207
  Receipt Date: 20121207
  Transmission Date: 20130627
  Serious: Yes (Other)
  Sender: FDA-Public Use
  Company Number: US-BAYER-2012-095925

PATIENT
  Age: 61 Year
  Sex: Male

DRUGS (4)
  1. NEXAVAR [Suspect]
     Indication: LIVER, CANCER OF
     Dosage: 200 mg, BID
     Dates: start: 20120907
  2. NEXAVAR [Suspect]
     Indication: LIVER, CANCER OF
     Dosage: 600 mg (1 tablet in am + 2 tablets in pm)
     Dates: start: 2012, end: 2012
  3. NEXAVAR [Suspect]
     Indication: LIVER, CANCER OF
     Dosage: 400 mg, BID
     Dates: start: 2012, end: 2012
  4. NEXAVAR [Suspect]
     Indication: LIVER, CANCER OF
     Dosage: 200 mg, QD
     Dates: start: 20121126

REACTIONS (11)
  - Stomatitis [Recovered/Resolved]
  - Nausea [Recovering/Resolving]
  - Genital rash [Recovered/Resolved]
  - Scrotal erythema [Recovered/Resolved]
  - Skin exfoliation [Recovered/Resolved]
  - Genital rash [Recovered/Resolved]
  - Skin burning sensation [Recovered/Resolved]
  - Blister [Recovered/Resolved]
  - Fatigue [Not Recovered/Not Resolved]
  - Decreased appetite [Not Recovered/Not Resolved]
  - Weight increased [None]
